FAERS Safety Report 7226207-6 (Version None)
Quarter: 2011Q1

REPORT INFORMATION
  Report Type: 
  Country: None (occurrence: None)
  Receive Date: 20110114
  Receipt Date: 20101231
  Transmission Date: 20110831
  Serious: Yes (Other)
  Sender: FDA-Public Use
  Company Number: PHEH2006US12309

PATIENT
  Sex: Female
  Weight: 74.829 kg

DRUGS (19)
  1. AREDIA [Suspect]
     Indication: BONE DENSITY DECREASED
     Dosage: 90 MG MONTHLY
  2. LISINOPRIL [Concomitant]
     Dosage: 40 MG, UNK
  3. VITAMIN B6 [Concomitant]
  4. PENICILLIN [Concomitant]
     Dosage: 500 MG, UNK
  5. PREDNISONE [Concomitant]
  6. CAPTOPRIL [Concomitant]
  7. NORVASC [Concomitant]
     Dosage: 2.5 MG, UNK
  8. PEPCID [Concomitant]
     Dosage: 20 MG, UNK
  9. FUROSEMIDE [Concomitant]
     Dosage: 20 MG, UNK
  10. DEXAMETHASONE [Concomitant]
  11. TRIAMTERENE [Concomitant]
  12. NIFEDICAL [Concomitant]
  13. CALCITRIOL [Concomitant]
     Dosage: 0.25 MG, UNK
  14. ARICEPT [Concomitant]
  15. ZOMETA [Suspect]
  16. PROCRIT                            /00909301/ [Concomitant]
  17. HYDROCODONE [Concomitant]
  18. METOPROLOL [Concomitant]
  19. MAXZIDE [Concomitant]
     Dosage: ^25/375 MG^ BID

REACTIONS (43)
  - NEPHROPATHY TOXIC [None]
  - RENAL FAILURE CHRONIC [None]
  - OEDEMA MOUTH [None]
  - CATARACT [None]
  - MENTAL STATUS CHANGES [None]
  - INTRACRANIAL VENOUS SINUS THROMBOSIS [None]
  - BACK PAIN [None]
  - SPINAL CORD COMPRESSION [None]
  - PERICARDIAL EFFUSION [None]
  - METABOLIC ACIDOSIS [None]
  - NEPHROSCLEROSIS [None]
  - TOOTH DISORDER [None]
  - COMPRESSION FRACTURE [None]
  - MUSCULAR WEAKNESS [None]
  - SWELLING [None]
  - NEUROPATHY PERIPHERAL [None]
  - ARTHRALGIA [None]
  - PROTEINURIA [None]
  - BLOOD CREATININE INCREASED [None]
  - INJURY [None]
  - HYPERPARATHYROIDISM [None]
  - MULTIPLE MYELOMA [None]
  - CORONARY ARTERY DISEASE [None]
  - INTERVERTEBRAL DISC DEGENERATION [None]
  - HYPERKALAEMIA [None]
  - FOOT FRACTURE [None]
  - OSTEONECROSIS OF JAW [None]
  - ANXIETY [None]
  - DEMENTIA [None]
  - CHONDROCALCINOSIS PYROPHOSPHATE [None]
  - CARDIOMEGALY [None]
  - DYSPNOEA [None]
  - POOR PERSONAL HYGIENE [None]
  - PAIN [None]
  - PHYSICAL DISABILITY [None]
  - OSTEOMYELITIS [None]
  - OPEN WOUND [None]
  - BONE DISORDER [None]
  - HALLUCINATION [None]
  - JOINT EFFUSION [None]
  - ARTERIOSCLEROSIS [None]
  - ANAEMIA OF CHRONIC DISEASE [None]
  - ARTERIOVENOUS FISTULA SITE COMPLICATION [None]
